FAERS Safety Report 20041716 (Version 2)
Quarter: 2021Q4

REPORT INFORMATION
  Report Type: Spontaneous
  Country: IT (occurrence: IT)
  Receive Date: 20211108
  Receipt Date: 20211122
  Transmission Date: 20220303
  Serious: Yes (Hospitalization)
  Sender: FDA-Public Use
  Company Number: IT-AMGEN-ITANI2021169949

PATIENT
  Age: 59 Year
  Sex: Female
  Weight: 62 kg

DRUGS (8)
  1. BEVACIZUMAB [Suspect]
     Active Substance: BEVACIZUMAB
     Indication: Adenocarcinoma of colon
     Dosage: 450 MILLIGRAM, CYCLICAL
     Route: 042
     Dates: start: 20191216, end: 20210324
  2. BEVACIZUMAB [Suspect]
     Active Substance: BEVACIZUMAB
     Dosage: 450 MILLIGRAM, CYCLICAL
     Route: 042
     Dates: start: 20210323, end: 20210323
  3. ACETAMINOPHEN [Concomitant]
     Active Substance: ACETAMINOPHEN
     Indication: Pain
     Dosage: 500 MILLIGRAM, AS NECESSARY
     Route: 048
  4. LASIX FAIBLE [Concomitant]
     Indication: Oedema
     Dosage: 25 MILLIGRAM, AS NECESSARY
     Route: 048
  5. BIORINIL [Concomitant]
     Indication: Rhinitis
     Dosage: UNK
     Route: 055
  6. IRINOTECAN HYDROCHLORIDE [Concomitant]
     Active Substance: IRINOTECAN HYDROCHLORIDE
     Indication: Adenocarcinoma of colon
     Dosage: 154 MILLIGRAM, CYCLICAL
     Route: 042
     Dates: start: 20210323, end: 20210323
  7. IRINOTECAN HYDROCHLORIDE [Concomitant]
     Active Substance: IRINOTECAN HYDROCHLORIDE
     Dosage: 154 MILLIGRAM, CYCLICAL
     Route: 042
     Dates: start: 20210323, end: 20211018
  8. FLUIMUCIL [Concomitant]
     Active Substance: ACETYLCYSTEINE
     Indication: Rhinitis
     Dosage: 300 MILLIGRAM, AS NECESSARY
     Route: 055

REACTIONS (1)
  - Anaemia [Recovering/Resolving]

NARRATIVE: CASE EVENT DATE: 20210331
